FAERS Safety Report 11129054 (Version 1)
Quarter: 2015Q2

REPORT INFORMATION
  Report Type: Spontaneous
  Country: US (occurrence: US)
  Receive Date: 20150521
  Receipt Date: 20150521
  Transmission Date: 20150821
  Serious: No
  Sender: FDA-Public Use
  Company Number: US-MALLINCKRODT-QSC-2014-0237

PATIENT
  Sex: Female

DRUGS (1)
  1. H.P. ACTHAR [Suspect]
     Active Substance: CORTICOTROPIN
     Indication: FOCAL SEGMENTAL GLOMERULOSCLEROSIS
     Dosage: 80 UNITS, BIW
     Dates: start: 20140331

REACTIONS (8)
  - Injection site bruising [Unknown]
  - Weight increased [None]
  - Injection site reaction [Unknown]
  - Injection site pain [Unknown]
  - Increased appetite [Not Recovered/Not Resolved]
  - Blood glucose fluctuation [Unknown]
  - Energy increased [Not Recovered/Not Resolved]
  - Blood pressure decreased [Unknown]

NARRATIVE: CASE EVENT DATE: 2014
